FAERS Safety Report 7469185-7 (Version None)
Quarter: 2011Q2

REPORT INFORMATION
  Report Type: 
  Country: None (occurrence: None)
  Receive Date: 20110503
  Receipt Date: 20110503
  Transmission Date: 20111010
  Serious: No
  Sender: FDA-Public Use
  Company Number: None

PATIENT

DRUGS (1)
  1. CALCIUM CITRATE PLUS D 500 IU VITAMIN D BAYER [Suspect]
     Dosage: 2 TABLETS TWICE DAILY PO
     Route: 048

REACTIONS (1)
  - DRUG LABEL CONFUSION [None]
